FAERS Safety Report 6703396-0 (Version None)
Quarter: 2010Q2

REPORT INFORMATION
  Report Type: 
  Country: None (occurrence: None)
  Receive Date: 20100423
  Receipt Date: 20091123
  Transmission Date: 20101027
  Serious: No
  Sender: FDA-Public Use
  Company Number: ALL1-2009-02683

PATIENT
  Age: 33 Year
  Sex: Male

DRUGS (9)
  1. VYVANSE [Suspect]
     Indication: ATTENTION DEFICIT/HYPERACTIVITY DISORDER
     Dosage: 30 MG, 1X/DAY:QD, ORAL ; 60 MG, 1X/DAY:QD, ORAL
     Route: 048
     Dates: start: 20090601, end: 20090801
  2. VYVANSE [Suspect]
     Indication: ATTENTION DEFICIT/HYPERACTIVITY DISORDER
     Dosage: 30 MG, 1X/DAY:QD, ORAL ; 60 MG, 1X/DAY:QD, ORAL
     Route: 048
     Dates: start: 20090817
  3. XYZAL [Concomitant]
  4. TRAMADOL HCL [Concomitant]
  5. SINGULAIR /01362601/ (MONTELUKAST) [Concomitant]
  6. PROVENTIL /00139501/ (SALBUTAMOL) [Concomitant]
  7. CRESTOR [Concomitant]
  8. CIALIS [Concomitant]
  9. ASMANEX TWISTHALER [Concomitant]

REACTIONS (5)
  - DIZZINESS [None]
  - DYSPNOEA [None]
  - HEART RATE INCREASED [None]
  - HEART RATE IRREGULAR [None]
  - PALPITATIONS [None]
